FAERS Safety Report 10690132 (Version 2)
Quarter: 2015Q1

REPORT INFORMATION
  Report Type: Spontaneous
  Country: FR (occurrence: FR)
  Receive Date: 20150105
  Receipt Date: 20150108
  Transmission Date: 20150720
  Serious: Yes (Hospitalization)
  Sender: FDA-Public Use
  Company Number: FR-009507513-1412FRA012466

PATIENT
  Age: 98 Year
  Sex: Female

DRUGS (11)
  1. LASILIX [Suspect]
     Active Substance: FUROSEMIDE
     Dosage: 375 MG, QD
     Route: 048
     Dates: start: 2010, end: 20140317
  2. KARDEGIC [Concomitant]
     Active Substance: ASPIRIN LYSINE
     Dosage: 75 MG, QD
     Route: 048
     Dates: start: 20140304
  3. THERAPY UNSPECIFIED [Suspect]
     Active Substance: UNSPECIFIED INGREDIENT
  4. COZAAR [Concomitant]
     Active Substance: LOSARTAN POTASSIUM
     Dosage: 50 MG, QD
     Route: 048
     Dates: start: 2010
  5. NITRIDERM-TTS [Concomitant]
     Active Substance: NITROGLYCERIN
     Dosage: 10 MG, QD (STRENGTH: 10 MG/24 H)
     Route: 062
     Dates: start: 2010
  6. PREDNISONE. [Concomitant]
     Active Substance: PREDNISONE
     Indication: POLYMYALGIA RHEUMATICA
     Dosage: 40 MG, QD
     Route: 048
     Dates: start: 20140307, end: 20140317
  7. OMEPRAZOL ACTAVIS [Concomitant]
     Active Substance: OMEPRAZOLE
     Dosage: 20 MG, QD
     Route: 048
     Dates: start: 20140307
  8. ACETAMINOPHEN. [Concomitant]
     Active Substance: ACETAMINOPHEN
     Dosage: UNK, PRN
     Route: 048
     Dates: start: 2010
  9. SELOKEN [Concomitant]
     Active Substance: METOPROLOL
     Dosage: 200 MG, QD
     Route: 048
     Dates: start: 2010
  10. ADANCOR [Concomitant]
     Active Substance: NICORANDIL
     Dosage: 10 MG, BID
     Route: 048
     Dates: start: 2010
  11. DAONIL [Concomitant]
     Active Substance: GLYBURIDE
     Dosage: 2.5 MG, BID
     Route: 048

REACTIONS (3)
  - Confusional state [Recovered/Resolved]
  - Fall [Recovered/Resolved]
  - Hyponatraemia [Recovered/Resolved]

NARRATIVE: CASE EVENT DATE: 20140317
